FAERS Safety Report 5406555-2 (Version None)
Quarter: 2007Q3

REPORT INFORMATION
  Report Type: 
  Country: None (occurrence: None)
  Receive Date: 20070806
  Receipt Date: 20070725
  Transmission Date: 20080115
  Serious: Yes (Hospitalization, Other)
  Sender: FDA-Public Use
  Company Number: FR-PFIZER INC-2007045677

PATIENT
  Sex: Male
  Weight: 74 kg

DRUGS (9)
  1. NEURONTIN [Suspect]
     Indication: NEURALGIA
     Dosage: DAILY DOSE:1200MG
     Route: 048
     Dates: start: 20070516, end: 20070602
  2. ORGARAN [Suspect]
     Dosage: DAILY DOSE:2225I.U.
     Route: 058
     Dates: start: 20070516, end: 20070604
  3. DRUG, UNSPECIFIED [Concomitant]
  4. NEXIUM [Concomitant]
     Route: 048
  5. ZOLPIDEM TARTRATE [Concomitant]
     Route: 048
     Dates: start: 20070516, end: 20070602
  6. SEROPRAM [Concomitant]
     Route: 048
     Dates: start: 20070516, end: 20070602
  7. CORTANCYL [Concomitant]
     Route: 048
     Dates: start: 20070516, end: 20070610
  8. DI-ANTALVIC [Concomitant]
     Route: 048
     Dates: start: 20070516, end: 20070602
  9. POTASSIUM CHLORIDE [Concomitant]
     Route: 048

REACTIONS (6)
  - ALANINE AMINOTRANSFERASE INCREASED [None]
  - ASPARTATE AMINOTRANSFERASE INCREASED [None]
  - BLOOD ALKALINE PHOSPHATASE INCREASED [None]
  - GAMMA-GLUTAMYLTRANSFERASE INCREASED [None]
  - ISCHAEMIC STROKE [None]
  - RESPIRATORY DISTRESS [None]
